FAERS Safety Report 16798246 (Version 2)
Quarter: 2019Q3

REPORT INFORMATION
  Report Type: Spontaneous
  Country: US (occurrence: US)
  Receive Date: 20190912
  Receipt Date: 20190925
  Transmission Date: 20191005
  Serious: No
  Sender: FDA-Public Use
  Company Number: US-GLAXOSMITHKLINE-US2019162544

PATIENT
  Age: 36 Year
  Sex: Female

DRUGS (2)
  1. ABREVA [Suspect]
     Active Substance: DOCOSANOL
     Indication: ORAL HERPES
     Dosage: UNK UNK, QID
     Dates: start: 20190826, end: 20190901
  2. ABREVA [Suspect]
     Active Substance: DOCOSANOL
     Dosage: UNK UNK, QID
     Dates: start: 20190826, end: 20190901

REACTIONS (2)
  - Inappropriate schedule of product administration [Unknown]
  - Incorrect product administration duration [Unknown]

NARRATIVE: CASE EVENT DATE: 20190826
